FAERS Safety Report 6145114-3 (Version None)
Quarter: 2009Q2

REPORT INFORMATION
  Report Type: 
  Country: None (occurrence: None)
  Receive Date: 20090402
  Receipt Date: 20090402
  Transmission Date: 20091009
  Serious: No
  Sender: FDA-Public Use
  Company Number: None

PATIENT
  Age: 64 Year
  Sex: Female
  Weight: 68.0396 kg

DRUGS (1)
  1. EQUATE SALINE NASAL SPRAY EQUATE [Suspect]
     Indication: SINUS DISORDER
     Dosage: NASAL
     Route: 045
     Dates: start: 20090401, end: 20090401

REACTIONS (6)
  - DYSGEUSIA [None]
  - FEELING ABNORMAL [None]
  - NASAL DISCOMFORT [None]
  - ORAL DISCOMFORT [None]
  - PRODUCT QUALITY ISSUE [None]
  - STOMATITIS [None]
